FAERS Safety Report 4727542-3 (Version None)
Quarter: 2005Q3

REPORT INFORMATION
  Report Type: 
  Country: None (occurrence: None)
  Receive Date: 20050727
  Receipt Date: 20050727
  Transmission Date: 20060218
  Serious: Yes (Hospitalization)
  Sender: FDA-Public Use
  Company Number: None

PATIENT
  Age: 58 Year
  Sex: Male

DRUGS (17)
  1. GATIFLOXACIN [Suspect]
     Indication: COUGH
     Dosage: 400 MG PO QD
     Route: 048
     Dates: start: 20050515, end: 20050519
  2. GATIFLOXACIN [Suspect]
     Indication: DYSPNOEA EXERTIONAL
     Dosage: 400 MG PO QD
     Route: 048
     Dates: start: 20050515, end: 20050519
  3. GATIFLOXACIN [Suspect]
     Indication: WHEEZING
     Dosage: 400 MG PO QD
     Route: 048
     Dates: start: 20050515, end: 20050519
  4. METHYLPREDNISOLONE [Suspect]
     Indication: UPPER RESPIRATORY TRACT INFECTION
     Dosage: 80MG IV Q8H
     Route: 042
     Dates: start: 20050515, end: 20050519
  5. ACETAMINOPHEN [Concomitant]
  6. ALBUTEROL [Concomitant]
  7. ASPIRIN [Concomitant]
  8. FOSINOPRIL SODIUM [Concomitant]
  9. GATIFLOXACIN [Concomitant]
  10. GUAIFENESIN/CODEINE SYRUP [Concomitant]
  11. HEPARIN [Concomitant]
  12. HYDROCHLOROTHIAZIDE [Concomitant]
  13. IPRATROPIUM BROMIDE [Concomitant]
  14. LORATADINE [Concomitant]
  15. MONTELUKAST [Concomitant]
  16. PROMETHAZINE HCL [Concomitant]
  17. METHYLPREDNISOLONE SODIUM SUCCINATE [Concomitant]

REACTIONS (1)
  - HYPERGLYCAEMIA [None]
